FAERS Safety Report 8889820 (Version 2)
Quarter: 2012Q4

REPORT INFORMATION
  Report Type: Spontaneous
  Country: NZ (occurrence: None)
  Receive Date: 20121031
  Receipt Date: 20121107
  Transmission Date: 20130627
  Serious: Yes (Hospitalization)
  Sender: FDA-Public Use
  Company Number: 2012AP003542

PATIENT
  Age: 83 Year
  Sex: Male

DRUGS (5)
  1. ALENDRONIC ACID (ALENDRONIC ACID) [Suspect]
     Indication: POLYARTERITIS NODOSA
  2. ALENDRONIC ACID (ALENDRONIC ACID) [Suspect]
     Indication: RHEUMATOID ARTHRITIS
  3. PREDNISONE (PREDNISONE) [Suspect]
     Route: 048
  4. PREDNISONE (PREDNISONE) [Suspect]
     Route: 048
  5. METHOTREXATE (METHOTREXATE) [Concomitant]

REACTIONS (3)
  - Oesophageal ulcer [None]
  - Neutrophilia [None]
  - Monocytosis [None]
